FAERS Safety Report 5277957-2 (Version None)
Quarter: 2007Q1

REPORT INFORMATION
  Report Type: 
  Country: None (occurrence: None)
  Receive Date: 20070321
  Receipt Date: 20070312
  Transmission Date: 20070707
  Serious: Yes (Hospitalization, Other)
  Sender: FDA-Public Use
  Company Number: 163-21880-07020090

PATIENT
  Age: 75 Year
  Sex: Male

DRUGS (29)
  1. REVLIMID [Suspect]
     Indication: MYELODYSPLASTIC SYNDROME
     Dosage: 10 MG, 2 IN 1 D, ORAL
     Route: 048
     Dates: start: 20070120, end: 20070201
  2. PROCRIT [Concomitant]
  3. ASPIRIN [Concomitant]
  4. PLAVIX [Concomitant]
  5. COLCHICINE (COLCHICINE) [Concomitant]
  6. VOLTAREN (DICOFENAC SODIUM) [Concomitant]
  7. LASIX [Concomitant]
  8. INSULIN (INSULIN) [Concomitant]
  9. COZAAR [Concomitant]
  10. LOPRESSOR [Concomitant]
  11. PREDNISONE TAB [Concomitant]
  12. NIFEREX (POLYSACCHARIDE-IRON COMPLEX) [Concomitant]
  13. AVAPRO [Concomitant]
  14. VYTORIN (NEGY) [Concomitant]
  15. PRADIN (DEFLAZACORT) [Concomitant]
  16. COMBIVENT [Concomitant]
  17. BECONASE (BECLOMETASONE DIPROPIONATE) (NASA DROPS (INCLUDING NASA SPRA [Concomitant]
  18. LIDOCAINE [Concomitant]
  19. CORTISONE (CORTISONE) (CREAM) [Concomitant]
  20. HYDREA (HYDROXYCARBAMIDE) (CAPSULES) [Concomitant]
  21. OXYCONTIN (OXYCONTIN HYDROCHLORIDE) [Concomitant]
  22. VICODIN [Concomitant]
  23. LIDODERM [Concomitant]
  24. ARTHROTEC [Concomitant]
  25. METOPROLOL TARTRATE [Concomitant]
  26. CYTOTEC [Concomitant]
  27. AVELOX [Concomitant]
  28. VANCOMCYIN (VANCOMYCIN) [Concomitant]
  29. DARVOCET [Concomitant]

REACTIONS (25)
  - ABDOMINAL PAIN [None]
  - ACUTE RESPIRATORY DISTRESS SYNDROME [None]
  - ANAEMIA [None]
  - ANAPHYLACTIC REACTION [None]
  - ASTHENIA [None]
  - ATRIOVENTRICULAR BLOCK COMPLETE [None]
  - CARDIAC FAILURE CONGESTIVE [None]
  - CHEST PAIN [None]
  - CHRONIC OBSTRUCTIVE PULMONARY DISEASE [None]
  - DEEP VEIN THROMBOSIS [None]
  - DIARRHOEA [None]
  - DYSPHONIA [None]
  - DYSURIA [None]
  - HYPERNATRAEMIA [None]
  - HYPERSENSITIVITY [None]
  - MULTI-ORGAN FAILURE [None]
  - MUSCULOSKELETAL CHEST PAIN [None]
  - PAIN IN EXTREMITY [None]
  - PLATELET COUNT INCREASED [None]
  - RENAL FAILURE ACUTE [None]
  - RESPIRATORY FAILURE [None]
  - SPLENIC HAEMORRHAGE [None]
  - SPLENIC INFARCTION [None]
  - TRANSFUSION REACTION [None]
  - WHITE BLOOD CELL COUNT INCREASED [None]
